FAERS Safety Report 6714899-7 (Version None)
Quarter: 2010Q2

REPORT INFORMATION
  Report Type: 
  Country: None (occurrence: None)
  Receive Date: 20100506
  Receipt Date: 20100506
  Transmission Date: 20101027
  Serious: Yes (Other)
  Sender: FDA-Public Use
  Company Number: None

PATIENT
  Age: 5 Year
  Sex: Female
  Weight: 23.587 kg

DRUGS (4)
  1. CHILDREN'S ZYRTEC ALLERGY [Suspect]
     Indication: LACRIMATION INCREASED
     Dosage: 1/2 TSP ONCE PO
     Route: 048
     Dates: start: 20100428, end: 20100428
  2. CHILDREN'S ZYRTEC ALLERGY [Suspect]
     Indication: RHINORRHOEA
     Dosage: 1/2 TSP ONCE PO
     Route: 048
     Dates: start: 20100428, end: 20100428
  3. CHILDREN'S TYLENOL PLUS MULTI-SYMPTOM [Suspect]
     Indication: LACRIMATION INCREASED
     Dosage: 1 1/2 TSP GIVEN 2X PO
     Route: 048
     Dates: start: 20100428, end: 20100429
  4. CHILDREN'S TYLENOL PLUS MULTI-SYMPTOM [Suspect]
     Indication: RHINORRHOEA
     Dosage: 1 1/2 TSP GIVEN 2X PO
     Route: 048
     Dates: start: 20100428, end: 20100429

REACTIONS (5)
  - ABDOMINAL PAIN UPPER [None]
  - PRODUCT CONTAMINATION MICROBIAL [None]
  - PRODUCT CONTAMINATION PHYSICAL [None]
  - PRODUCT QUALITY ISSUE [None]
  - VOMITING [None]
